FAERS Safety Report 6639571-3 (Version None)
Quarter: 2010Q1

REPORT INFORMATION
  Report Type: 
  Country: None (occurrence: None)
  Receive Date: 20100318
  Receipt Date: 20100308
  Transmission Date: 20100710
  Serious: Yes (Hospitalization)
  Sender: FDA-Public Use
  Company Number: US-JNJFOC-20100206681

PATIENT
  Sex: Female
  Weight: 91.63 kg

DRUGS (3)
  1. INFLIXIMAB [Suspect]
     Indication: PSORIASIS
     Route: 042
  2. INFLIXIMAB [Suspect]
     Route: 042
  3. CORTICOSTEROIDS [Concomitant]
     Route: 061

REACTIONS (1)
  - AORTIC ANEURYSM [None]
